FAERS Safety Report 5231512-9 (Version None)
Quarter: 2007Q1

REPORT INFORMATION
  Report Type: 
  Country: None (occurrence: None)
  Receive Date: 20061201
  Receipt Date: 20060914
  Transmission Date: 20070707
  Serious: No
  Sender: FDA-Public Use
  Company Number: 2006PV021240

PATIENT
  Age: 76 Year
  Sex: Female
  Weight: 83.9154 kg

DRUGS (13)
  1. BYETTA [Suspect]
     Indication: DIABETES MELLITUS NON-INSULIN-DEPENDENT
     Dosage: 5 MCG;BID;SC
     Route: 058
     Dates: start: 20060901
  2. METFORMIN HCL [Concomitant]
  3. ACTOS /USA/ [Concomitant]
  4. AMARYL [Concomitant]
  5. LISINOPRIL [Concomitant]
  6. POTASSIUM ACETATE [Concomitant]
  7. ZOCOR [Concomitant]
  8. TOPROL-XL [Concomitant]
  9. CRESTOR [Concomitant]
  10. PREVACID [Concomitant]
  11. ASPIRIN [Concomitant]
  12. CALCIUM [Concomitant]
  13. COZAAR [Concomitant]

REACTIONS (5)
  - DECREASED APPETITE [None]
  - DISCOMFORT [None]
  - NAUSEA [None]
  - VOMITING [None]
  - WEIGHT DECREASED [None]
